FAERS Safety Report 12266832 (Version 1)
Quarter: 2016Q2

REPORT INFORMATION
  Report Type: Spontaneous
  Country: US (occurrence: US)
  Receive Date: 20160414
  Receipt Date: 20160414
  Transmission Date: 20160815
  Serious: Yes (Other)
  Sender: FDA-Public Use
  Company Number: US-BAXTER-2016BAX018709

PATIENT
  Age: 54 Year
  Sex: Male

DRUGS (8)
  1. CRIZOTINIB [Suspect]
     Active Substance: CRIZOTINIB
     Indication: ANGIOSARCOMA
  2. GEMCITABINE [Suspect]
     Active Substance: GEMCITABINE\GEMCITABINE HYDROCHLORIDE
     Indication: PALLIATIVE CARE
     Dosage: TWO CYCLES
     Route: 065
     Dates: start: 20150722
  3. CRIZOTINIB [Suspect]
     Active Substance: CRIZOTINIB
     Indication: TYROSINE KINASE MUTATION
     Route: 048
     Dates: start: 20150903
  4. DOCETAXEL. [Suspect]
     Active Substance: DOCETAXEL
     Indication: PALLIATIVE CARE
     Dosage: TWO CYCLES
     Route: 065
     Dates: start: 20150722
  5. ENOXAPARIN [Suspect]
     Active Substance: ENOXAPARIN
     Indication: DISSEMINATED INTRAVASCULAR COAGULATION
     Dosage: LOW-DOSE HEPARIN
     Route: 065
     Dates: start: 201507
  6. ADRIAMYCIN [Suspect]
     Active Substance: DOXORUBICIN HYDROCHLORIDE
     Indication: PALLIATIVE CARE
     Dosage: TWO CYCLES
     Route: 065
     Dates: start: 20150520, end: 20150610
  7. CRIZOTINIB [Suspect]
     Active Substance: CRIZOTINIB
     Indication: DISSEMINATED INTRAVASCULAR COAGULATION
  8. IFOSFAMIDE FOR INJECTION [Suspect]
     Active Substance: IFOSFAMIDE
     Indication: PALLIATIVE CARE
     Dosage: TWO CYCLES
     Route: 065
     Dates: start: 20150520, end: 20150610

REACTIONS (17)
  - Sarcomatosis [Unknown]
  - Disseminated intravascular coagulation [Unknown]
  - Photopsia [Recovering/Resolving]
  - Oedema peripheral [Unknown]
  - Abdominal pain [Unknown]
  - Procedural pain [Unknown]
  - Thrombocytopenia [Recovered/Resolved]
  - Back pain [Recovered/Resolved]
  - Subarachnoid haemorrhage [Recovered/Resolved]
  - Hepatic angiosarcoma [Unknown]
  - Deep vein thrombosis [Unknown]
  - Metastases to bone [Unknown]
  - Musculoskeletal pain [Unknown]
  - Visual impairment [Recovering/Resolving]
  - Subdural haematoma [Unknown]
  - Malignant neoplasm progression [Unknown]
  - Erectile dysfunction [Unknown]

NARRATIVE: CASE EVENT DATE: 201507
